FAERS Safety Report 23954401 (Version 1)
Quarter: 2024Q2

REPORT INFORMATION
  Report Type: Spontaneous
  Country: US (occurrence: None)
  Receive Date: 20240610
  Receipt Date: 20240610
  Transmission Date: 20240716
  Serious: No
  Sender: FDA-Public Use
  Company Number: US-ROCHE-3508776

PATIENT
  Sex: Male

DRUGS (1)
  1. CELLCEPT [Suspect]
     Active Substance: MYCOPHENOLATE MOFETIL
     Indication: Uveitis
     Dosage: 6 TABLETS PER DAY- 500 MG EACH- 3 IN THE MORNING AND 3 AT NIGHT
     Route: 065
     Dates: start: 20231115

REACTIONS (2)
  - Off label use [Unknown]
  - Influenza [Unknown]
